FAERS Safety Report 9104608 (Version 2)
Quarter: 2013Q1

REPORT INFORMATION
  Report Type: Spontaneous
  Country: US (occurrence: US)
  Receive Date: 20130220
  Receipt Date: 20130301
  Transmission Date: 20140127
  Serious: No
  Sender: FDA-Public Use
  Company Number: US-PFIZER INC-2013062937

PATIENT
  Age: 65 Year
  Sex: Female
  Weight: 46.71 kg

DRUGS (1)
  1. NEURONTIN [Suspect]
     Indication: NEUROTRANSMITTER LEVEL ALTERED
     Dosage: UNK, 3X/DAY
     Route: 048
     Dates: start: 1998

REACTIONS (3)
  - Hypersensitivity [Unknown]
  - Dysphonia [Not Recovered/Not Resolved]
  - Off label use [Not Recovered/Not Resolved]
